FAERS Safety Report 11533949 (Version 2)
Quarter: 2015Q4

REPORT INFORMATION
  Report Type: Report from Study
  Country: JP (occurrence: JP)
  Receive Date: 20150922
  Receipt Date: 20151117
  Transmission Date: 20160304
  Serious: Yes (Hospitalization)
  Sender: FDA-Public Use
  Company Number: JP-ROCHE-1634817

PATIENT
  Age: 65 Year
  Sex: Male
  Weight: 61 kg

DRUGS (15)
  1. CAPECITABINE. [Suspect]
     Active Substance: CAPECITABINE
     Indication: COLON CANCER
     Route: 048
     Dates: start: 20140327, end: 20140409
  2. LANSOPRAZOLE. [Concomitant]
     Active Substance: LANSOPRAZOLE
     Indication: PROPHYLAXIS
     Dosage: REPORTED AS LANSOPRAZOLE OD
     Route: 048
     Dates: end: 20140426
  3. SEIBULE [Concomitant]
     Active Substance: MIGLITOL
     Route: 048
     Dates: end: 20140426
  4. ALOXI [Concomitant]
     Active Substance: PALONOSETRON HYDROCHLORIDE
     Indication: PROPHYLAXIS
     Dosage: EACH COURSE
     Route: 041
     Dates: start: 20140327, end: 20140418
  5. OXALIPLATIN. [Suspect]
     Active Substance: OXALIPLATIN
     Indication: COLON CANCER
     Route: 041
     Dates: start: 20140327, end: 20140327
  6. OXALIPLATIN. [Suspect]
     Active Substance: OXALIPLATIN
     Indication: COLON CANCER
     Route: 041
     Dates: start: 20140418, end: 20140418
  7. NOVORAPID [Concomitant]
     Active Substance: INSULIN ASPART
     Dosage: NOVORAPID 30 MIX
     Route: 058
     Dates: end: 20140426
  8. HEPARINOID [Concomitant]
     Active Substance: CHONDROITIN SULFATE (BOVINE)
     Indication: PROPHYLAXIS
     Dosage: THE PROPER QUANTITY AND EACH COURSE
     Route: 003
     Dates: start: 20140327, end: 20140418
  9. GASTER (CHINA) [Concomitant]
     Indication: PROPHYLAXIS
     Dosage: EACH COURSE
     Route: 041
     Dates: start: 20140327, end: 20140418
  10. DEXART [Concomitant]
     Active Substance: DEXAMETHASONE SODIUM PHOSPHATE
     Indication: PROPHYLAXIS
     Dosage: EACH COURSE
     Route: 041
     Dates: start: 20140327, end: 20140418
  11. UNISIA [Concomitant]
     Active Substance: AMLODIPINE BESYLATE\CANDESARTAN CILEXETIL
     Route: 048
     Dates: end: 20140426
  12. NOVOLIN R [Concomitant]
     Active Substance: INSULIN HUMAN
     Dosage: SLIDING SCALE
     Route: 058
     Dates: start: 20140427, end: 20140513
  13. CAPECITABINE. [Suspect]
     Active Substance: CAPECITABINE
     Indication: COLON CANCER
     Route: 048
     Dates: start: 20140418, end: 20140425
  14. TRICOR (JAPAN) [Concomitant]
     Route: 048
     Dates: end: 20140426
  15. POLARAMINE [Concomitant]
     Active Substance: DEXCHLORPHENIRAMINE MALEATE
     Indication: PROPHYLAXIS
     Dosage: EACH COURSE
     Route: 041
     Dates: start: 20140327, end: 20140418

REACTIONS (9)
  - Dehydration [Recovered/Resolved]
  - Decreased appetite [Recovered/Resolved]
  - Bone marrow failure [Unknown]
  - Mucous membrane disorder [Unknown]
  - Bacterial translocation [Unknown]
  - Platelet count decreased [Unknown]
  - Diarrhoea [Recovered/Resolved]
  - Disseminated intravascular coagulation [Recovered/Resolved]
  - Pyrexia [Recovered/Resolved]

NARRATIVE: CASE EVENT DATE: 20140330
